FAERS Safety Report 24868555 (Version 2)
Quarter: 2025Q1

REPORT INFORMATION
  Report Type: Spontaneous
  Country: US (occurrence: US)
  Receive Date: 20250121
  Receipt Date: 20250123
  Transmission Date: 20250408
  Serious: No
  Sender: BIOGEN
  Company Number: US-BIOGEN-2025BI01297464

PATIENT
  Sex: Female

DRUGS (1)
  1. TYSABRI [Suspect]
     Active Substance: NATALIZUMAB
     Indication: Multiple sclerosis
     Dosage: INFUSED OVER 1 HOUR
     Route: 050
     Dates: start: 20180628

REACTIONS (5)
  - Multiple sclerosis [Not Recovered/Not Resolved]
  - Visual acuity reduced [Unknown]
  - Cognitive disorder [Unknown]
  - Influenza [Not Recovered/Not Resolved]
  - Anxiety [Unknown]
